FAERS Safety Report 17437511 (Version 2)
Quarter: 2020Q1

REPORT INFORMATION
  Report Type: Spontaneous
  Country: AU (occurrence: AU)
  Receive Date: 20200219
  Receipt Date: 20200325
  Transmission Date: 20200409
  Serious: Yes (Congenital Anomaly)
  Sender: FDA-Public Use
  Company Number: AU-BIOGEN-2020BI00839103

PATIENT
  Weight: 2.6 kg

DRUGS (3)
  1. IVIG [Concomitant]
     Active Substance: HUMAN IMMUNOGLOBULIN G
     Indication: THROMBOCYTOPENIA NEONATAL
     Dosage: STARTED AT 33 WEEKS GESTATION
     Route: 064
  2. TYSABRI [Suspect]
     Active Substance: NATALIZUMAB
     Indication: MATERNAL EXPOSURE TIMING UNSPECIFIED
     Dosage: 5 INFUSIONS
     Route: 064
  3. TYSABRI [Suspect]
     Active Substance: NATALIZUMAB
     Dosage: 2 INFUSIONS
     Route: 064

REACTIONS (6)
  - Aorta hypoplasia [Unknown]
  - Exposure via breast milk [Unknown]
  - Ventricular septal defect [Unknown]
  - Foetal exposure during pregnancy [Recovered/Resolved]
  - Double outlet right ventricle [Unknown]
  - Congenital thrombocytopenia [Unknown]
